FAERS Safety Report 6166275-6 (Version None)
Quarter: 2009Q2

REPORT INFORMATION
  Report Type: 
  Country: None (occurrence: None)
  Receive Date: 20090424
  Receipt Date: 20090415
  Transmission Date: 20091009
  Serious: Yes (Other)
  Sender: FDA-Public Use
  Company Number: US-JNJFOC-20081000864

PATIENT
  Sex: Female
  Weight: 68.49 kg

DRUGS (14)
  1. REMICADE [Suspect]
     Route: 042
  2. REMICADE [Suspect]
     Route: 042
  3. REMICADE [Suspect]
     Indication: CROHN'S DISEASE
     Route: 042
  4. UNIVASC [Concomitant]
     Route: 048
  5. ASACOL [Concomitant]
     Route: 048
  6. IMODIUM A-D [Concomitant]
     Route: 048
  7. AZATHIOPRINE [Concomitant]
     Route: 048
  8. DIPHENHYDRAMINE HCL [Concomitant]
     Indication: ANAPHYLACTIC REACTION
     Route: 048
  9. EPINEPHRINE [Concomitant]
  10. AMSINO [Concomitant]
     Route: 042
  11. HEPARIN LOCK-FLUSH [Concomitant]
     Route: 042
  12. DIPHENHIST [Concomitant]
     Indication: PREMEDICATION
     Route: 048
  13. ACETAMINOPHEN [Concomitant]
     Indication: PREMEDICATION
     Route: 048
  14. CYANOCOBALAMIN [Concomitant]
     Route: 030

REACTIONS (4)
  - SENSITIVITY OF TEETH [None]
  - THERAPEUTIC RESPONSE DECREASED [None]
  - TOOTH LOSS [None]
  - TOOTHACHE [None]
